FAERS Safety Report 14442746 (Version 1)
Quarter: 2018Q1

REPORT INFORMATION
  Report Type: Spontaneous
  Country: US (occurrence: US)
  Receive Date: 20180125
  Receipt Date: 20180125
  Transmission Date: 20180509
  Serious: No
  Sender: FDA-Public Use
  Company Number: US-ABBVIE-17K-163-2009448-00

PATIENT
  Sex: Female
  Weight: 118.04 kg

DRUGS (5)
  1. NEXIUM 24HR [Suspect]
     Active Substance: ESOMEPRAZOLE MAGNESIUM
     Dosage: TAKEN ONCE A DAY BEFORE BED, SEVERAL HOURS AFTER DINNER
     Route: 065
     Dates: start: 2017
  2. NEXIUM 24HR [Suspect]
     Active Substance: ESOMEPRAZOLE MAGNESIUM
     Indication: DYSPEPSIA
     Dosage: TAKEN ONCE A DAY BEFORE BED, SEVERAL HOURS AFTER DINNER
     Route: 065
     Dates: start: 201701, end: 201705
  3. ATENOLOL. [Concomitant]
     Active Substance: ATENOLOL
     Indication: HYPERTENSION
     Dates: start: 2015
  4. HUMIRA [Suspect]
     Active Substance: ADALIMUMAB
     Indication: COLITIS ULCERATIVE
     Route: 058
     Dates: start: 201704
  5. NEXIUM 24HR [Suspect]
     Active Substance: ESOMEPRAZOLE MAGNESIUM
     Dosage: DOUBLE DOSE TAKEN
     Route: 065
     Dates: start: 201705

REACTIONS (4)
  - Weight decreased [Unknown]
  - Vomiting [Not Recovered/Not Resolved]
  - Drug ineffective [Unknown]
  - Gastrooesophageal reflux disease [Not Recovered/Not Resolved]

NARRATIVE: CASE EVENT DATE: 2017
